FAERS Safety Report 10007582 (Version 1)
Quarter: 2014Q1

REPORT INFORMATION
  Report Type: Spontaneous
  Country: US (occurrence: US)
  Receive Date: 20140313
  Receipt Date: 20140313
  Transmission Date: 20141002
  Serious: No
  Sender: FDA-Public Use
  Company Number: US-BRACCO-010272

PATIENT
  Sex: Female
  Weight: 51 kg

DRUGS (1)
  1. GASTROGRAFIN [Suspect]
     Indication: COMPUTERISED TOMOGRAM
     Dosage: 30 ML PER BOTTLE
     Route: 048
     Dates: start: 20130830, end: 20130830

REACTIONS (2)
  - Abdominal pain [Recovered/Resolved]
  - Diarrhoea [Recovered/Resolved]
